FAERS Safety Report 17948118 (Version 1)
Quarter: 2020Q2

REPORT INFORMATION
  Report Type: Spontaneous
  Country: US (occurrence: US)
  Receive Date: 20200625
  Receipt Date: 20200625
  Transmission Date: 20200714
  Serious: Yes (Hospitalization)
  Sender: FDA-Public Use
  Company Number: None

PATIENT
  Sex: Female

DRUGS (1)
  1. RETACRIT [Suspect]
     Active Substance: EPOETIN ALFA-EPBX
     Indication: ANAEMIA
     Dosage: ?          OTHER STRENGTH:10,000U/ML;OTHER DOSE:10,000 UNITS;?
     Route: 058
     Dates: start: 202005

REACTIONS (2)
  - Renal disorder [None]
  - Hypertension [None]
